FAERS Safety Report 21812956 (Version 1)
Quarter: 2023Q1

REPORT INFORMATION
  Report Type: Report from Study
  Country: FR (occurrence: None)
  Receive Date: 20230103
  Receipt Date: 20230103
  Transmission Date: 20230417
  Serious: Yes (Death)
  Sender: FDA-Public Use
  Company Number: FR-Eisai Medical Research-EC-2023-131184

PATIENT
  Age: 80 Year
  Sex: Female

DRUGS (2)
  1. LENVIMA [Suspect]
     Active Substance: LENVATINIB
     Indication: Endometrial cancer
     Route: 048
     Dates: end: 20221103
  2. KEYTRUDA [Concomitant]
     Active Substance: PEMBROLIZUMAB
     Indication: Endometrial cancer
     Dosage: DOSE AND FREQUENCY UNKNOWN
     Route: 041

REACTIONS (1)
  - Aneurysm ruptured [Fatal]

NARRATIVE: CASE EVENT DATE: 20221104
